FAERS Safety Report 25539673 (Version 1)
Quarter: 2025Q3

REPORT INFORMATION
  Report Type: Spontaneous
  Country: CN (occurrence: CN)
  Receive Date: 20250710
  Receipt Date: 20250710
  Transmission Date: 20251021
  Serious: Yes (Other)
  Sender: PFIZER
  Company Number: CN-PFIZER INC-PV202500080674

PATIENT
  Age: 78 Year
  Sex: Female
  Weight: 30 kg

DRUGS (4)
  1. TIGECYCLINE [Suspect]
     Active Substance: TIGECYCLINE
     Indication: Pneumonia
     Dosage: 50 MG, 2X/DAY
     Route: 041
     Dates: start: 20250604, end: 20250620
  2. SODIUM CHLORIDE [Suspect]
     Active Substance: SODIUM CHLORIDE
     Indication: Vehicle solution use
     Dosage: 100 ML, 2X/DAY
     Route: 041
     Dates: start: 20250604, end: 20250620
  3. ERTAPENEM [Concomitant]
     Active Substance: ERTAPENEM
     Indication: Pneumonia
     Dosage: 1 G, 1X/DAY
     Route: 041
     Dates: start: 20250605, end: 20250626
  4. SODIUM CHLORIDE [Concomitant]
     Active Substance: SODIUM CHLORIDE
     Indication: Vehicle solution use
     Dosage: 250 ML, 1X/DAY
     Route: 041
     Dates: start: 20250606, end: 20250626

REACTIONS (3)
  - Prothrombin time prolonged [Unknown]
  - Coagulopathy [Unknown]
  - Extravasation blood [Unknown]

NARRATIVE: CASE EVENT DATE: 20250618
